FAERS Safety Report 9818592 (Version 1)
Quarter: 2014Q1

REPORT INFORMATION
  Report Type: Spontaneous
  Country: US (occurrence: None)
  Receive Date: 20140114
  Receipt Date: 20140114
  Transmission Date: 20141002
  Serious: Yes (Death)
  Sender: FDA-Public Use
  Company Number: None

PATIENT
  Age: 29 Year
  Sex: Female
  Weight: 78.93 kg

DRUGS (8)
  1. HUMIRA [Suspect]
     Indication: CROHN^S DISEASE
     Dosage: 40 MG EVERY 14 DAYS  SUBCUTANEOUS
     Route: 058
     Dates: start: 20130919, end: 20131210
  2. CYMBALTA [Concomitant]
  3. TRAMADOL [Concomitant]
  4. HCTZ/TRIAMTERENE [Concomitant]
  5. NEURONTIN [Concomitant]
  6. PROMETHAZINE [Concomitant]
  7. RITALIN [Concomitant]
  8. ZOFRAN [Concomitant]

REACTIONS (3)
  - Pneumonia [None]
  - Gallbladder disorder [None]
  - Post procedural sepsis [None]
